FAERS Safety Report 9110569 (Version 1)
Quarter: 2013Q1

REPORT INFORMATION
  Report Type: Spontaneous
  Country: US (occurrence: US)
  Receive Date: 20130219
  Receipt Date: 20130219
  Transmission Date: 20140127
  Serious: No
  Sender: FDA-Public Use
  Company Number: US-BRISTOL-MYERS SQUIBB COMPANY-16929721

PATIENT
  Age: 62 Year
  Sex: Female
  Weight: 78.46 kg

DRUGS (4)
  1. ABATACEPT SUBQ INJECTION 125MG/ML [Suspect]
     Indication: RHEUMATOID ARTHRITIS
     Dosage: DATE OF LAST INJECTION:  25AUG2012?3-4YRS
     Route: 058
  2. TRAMADOL [Concomitant]
  3. MELOXICAM [Concomitant]
  4. NORETHINDRONE [Concomitant]
     Dosage: A GEL THING WITH HORMONE STUFF AS PART OF HORMONE REPLACEMENT THERAPY

REACTIONS (1)
  - Drug dose omission [Unknown]
